FAERS Safety Report 22270173 (Version 1)
Quarter: 2023Q2

REPORT INFORMATION
  Report Type: Spontaneous
  Country: US (occurrence: None)
  Receive Date: 20230428
  Receipt Date: 20230428
  Transmission Date: 20230722
  Serious: Yes (Life-Threatening, Hospitalization)
  Sender: FDA-Public Use
  Company Number: None

PATIENT
  Age: 73 Year
  Sex: Male
  Weight: 121.5 kg

DRUGS (1)
  1. NITROGLYCERIN [Suspect]
     Active Substance: NITROGLYCERIN
     Indication: Angiogram
     Dosage: OTHER FREQUENCY : ADMINISTERED ONCE;?OTHER ROUTE : INJECTION WHERE THEY WERE RUNNING A TUBE;?
     Route: 050
     Dates: start: 20230418, end: 20230418

REACTIONS (2)
  - Visual impairment [None]
  - Optic nerve disorder [None]

NARRATIVE: CASE EVENT DATE: 20230418
